FAERS Safety Report 6492549-5 (Version None)
Quarter: 2009Q4

REPORT INFORMATION
  Report Type: 
  Country: None (occurrence: None)
  Receive Date: 20091214
  Receipt Date: 20091209
  Transmission Date: 20100525
  Serious: Yes (Hospitalization)
  Sender: FDA-Public Use
  Company Number: FR-ROCHE-673836

PATIENT
  Age: 44 Year
  Sex: Female

DRUGS (3)
  1. CELLCEPT [Suspect]
     Indication: DRUG USE FOR UNKNOWN INDICATION
     Dosage: DOSE FROM 1 G X 2 TO 750 X 2 TO 500 X 2
     Route: 048
     Dates: end: 20090401
  2. CELLCEPT [Suspect]
     Dosage: 750X2; REINTRODUCED AFTER 36 HOURS
     Route: 048
     Dates: start: 20090401
  3. BACTRIM [Suspect]
     Indication: DRUG USE FOR UNKNOWN INDICATION
     Route: 048

REACTIONS (2)
  - NEUTROPENIA [None]
  - WOUND [None]
